FAERS Safety Report 21756777 (Version 1)
Quarter: 2022Q4

REPORT INFORMATION
  Report Type: Spontaneous
  Country: BE (occurrence: None)
  Receive Date: 20221220
  Receipt Date: 20221220
  Transmission Date: 20230113
  Serious: Yes (Hospitalization, Other)
  Sender: FDA-Public Use
  Company Number: 2022A404957

PATIENT
  Age: 16492 Day
  Sex: Female

DRUGS (2)
  1. TAGRISSO [Suspect]
     Active Substance: OSIMERTINIB
     Dosage: 80MG
     Route: 048
     Dates: start: 20200824
  2. TAGRISSO [Suspect]
     Active Substance: OSIMERTINIB
     Dosage: 40MG
     Route: 048

REACTIONS (3)
  - Dehydration [Unknown]
  - Fatigue [Unknown]
  - Diarrhoea [Recovered/Resolved]

NARRATIVE: CASE EVENT DATE: 20221017
